FAERS Safety Report 11138821 (Version 1)
Quarter: 2015Q2

REPORT INFORMATION
  Report Type: Spontaneous
  Country: US (occurrence: None)
  Receive Date: 20150526
  Receipt Date: 20150526
  Transmission Date: 20150821
  Serious: No
  Sender: FDA-Public Use
  Company Number: None

PATIENT
  Age: 57 Year
  Sex: Female

DRUGS (2)
  1. WELLBUTRIN [Concomitant]
     Active Substance: BUPROPION HYDROCHLORIDE
  2. IBRANCE [Suspect]
     Active Substance: PALBOCICLIB
     Indication: BREAST CANCER
     Route: 048
     Dates: start: 20150306

REACTIONS (7)
  - Fatigue [None]
  - Stomatitis [None]
  - Vomiting [None]
  - Arthralgia [None]
  - Hot flush [None]
  - Feeling cold [None]
  - Nausea [None]

NARRATIVE: CASE EVENT DATE: 201503
